FAERS Safety Report 5459901-8 (Version None)
Quarter: 2007Q3

REPORT INFORMATION
  Report Type: 
  Country: None (occurrence: None)
  Receive Date: 20070919
  Receipt Date: 20070914
  Transmission Date: 20080115
  Serious: Yes (Hospitalization, Congenital Anomaly)
  Sender: FDA-Public Use
  Company Number: DEWYE899022JUN07

PATIENT
  Sex: Male
  Weight: 2.15 kg

DRUGS (2)
  1. VENLAFAXINE HCL [Suspect]
     Indication: ANXIETY DISORDER
     Dosage: 150 MG IN THE MORNING AND 75 MG IN THE EVENING
     Route: 048
     Dates: start: 20061106
  2. VENLAFAXINE HCL [Suspect]
     Indication: DEPRESSION

REACTIONS (5)
  - CAESAREAN SECTION [None]
  - CLEFT PALATE [None]
  - DRUG EXPOSURE DURING PREGNANCY [None]
  - EYE DISORDER [None]
  - PREMATURE BABY [None]
